FAERS Safety Report 6011209-8 (Version None)
Quarter: 2008Q4

REPORT INFORMATION
  Report Type: 
  Country: None (occurrence: None)
  Receive Date: 20081216
  Receipt Date: 20081203
  Transmission Date: 20090506
  Serious: Yes (Hospitalization)
  Sender: FDA-Public Use
  Company Number: 232521K08USA

PATIENT
  Age: 41 Year
  Sex: Female

DRUGS (5)
  1. REBIF [Suspect]
     Indication: MULTIPLE SCLEROSIS
     Dosage: 44 MCG, 3 IN 1 WEEKS, SUBCUTANEOUS
     Route: 058
     Dates: start: 20020101
  2. MOTRIN [Concomitant]
  3. BACLOFEN [Concomitant]
  4. NITROFURANTOIN [Concomitant]
  5. KRISTALOSE (LACTULOSE) [Concomitant]

REACTIONS (3)
  - DEHYDRATION [None]
  - FALL [None]
  - RHABDOMYOLYSIS [None]
